FAERS Safety Report 23706416 (Version 1)
Quarter: 2024Q2

REPORT INFORMATION
  Report Type: Spontaneous
  Country: US (occurrence: US)
  Receive Date: 20240404
  Receipt Date: 20240404
  Transmission Date: 20240716
  Serious: Yes (Other)
  Sender: FDA-Public Use
  Company Number: US-ENDO-CASE-0044643

PATIENT
  Sex: Male

DRUGS (21)
  1. METHADONE HYDROCHLORIDE [Suspect]
     Active Substance: METHADONE HYDROCHLORIDE
  2. OPANA ER [Suspect]
     Active Substance: OXYMORPHONE HYDROCHLORIDE
  3. ACETAMINOPHEN\HYDROCODONE BITARTRATE [Suspect]
     Active Substance: ACETAMINOPHEN\HYDROCODONE BITARTRATE
  4. ENDODAN [Suspect]
     Active Substance: ASPIRIN\OXYCODONE HYDROCHLORIDE
  5. ACETAMINOPHEN\OXYCODONE HYDROCHLORIDE [Suspect]
     Active Substance: ACETAMINOPHEN\OXYCODONE HYDROCHLORIDE
  6. ENDOCET [Suspect]
     Active Substance: ACETAMINOPHEN\OXYCODONE HYDROCHLORIDE
  7. BUPRENORPHINE HYDROCHLORIDE [Suspect]
     Active Substance: BUPRENORPHINE HYDROCHLORIDE
  8. TRAMADOL HYDROCHLORIDE [Suspect]
     Active Substance: TRAMADOL HYDROCHLORIDE
  9. PERCOCET [Suspect]
     Active Substance: ACETAMINOPHEN\OXYCODONE HYDROCHLORIDE
  10. OPANA [Suspect]
     Active Substance: OXYMORPHONE HYDROCHLORIDE
  11. BELBUCA [Suspect]
     Active Substance: BUPRENORPHINE HYDROCHLORIDE
  12. ACETAMINOPHEN AND CODEINE [Suspect]
     Active Substance: ACETAMINOPHEN\CODEINE PHOSPHATE
  13. CHERATUSSIN AC [Suspect]
     Active Substance: CODEINE PHOSPHATE\GUAIFENESIN
  14. HYDROCODONE BITARTRATE\IBUPROFEN [Suspect]
     Active Substance: HYDROCODONE BITARTRATE\IBUPROFEN
  15. GUAIFENESIN\HYDROCODONE BITARTRATE [Suspect]
     Active Substance: GUAIFENESIN\HYDROCODONE BITARTRATE
  16. CODEINE PHOSPHATE\GUAIFENESIN [Suspect]
     Active Substance: CODEINE PHOSPHATE\GUAIFENESIN
  17. PROMETHAZINE HYDROCHLORIDE AND CODEINE PHOSPHATE [Suspect]
     Active Substance: CODEINE PHOSPHATE\PROMETHAZINE HYDROCHLORIDE
  18. ACETAMINOPHEN\HYDROCODONE BITARTRATE [Suspect]
     Active Substance: ACETAMINOPHEN\HYDROCODONE BITARTRATE
  19. IBUDONE [Suspect]
     Active Substance: HYDROCODONE BITARTRATE\IBUPROFEN
  20. BUTALBITAL, ACETAMINOPHEN AND CAFFEINE WITH CODEINE PHOSPHATE [Suspect]
     Active Substance: ACETAMINOPHEN\BUTALBITAL\CAFFEINE\CODEINE PHOSPHATE
  21. HYDROCODONE POLISTIREX AND CHLORPHENIRAMINE POLISTIREX [Suspect]
     Active Substance: CHLORPHENIRAMINE MALEATE\HYDROCODONE BITARTRATE

REACTIONS (2)
  - Overdose [Unknown]
  - Dependence [Unknown]
